FAERS Safety Report 10750114 (Version 3)
Quarter: 2015Q3

REPORT INFORMATION
  Report Type: Report from Study
  Country: US (occurrence: US)
  Receive Date: 20150129
  Receipt Date: 20150729
  Transmission Date: 20151125
  Serious: Yes (Hospitalization)
  Sender: FDA-Public Use
  Company Number: US-GILEAD-2015-0134135

PATIENT
  Age: 51 Year
  Sex: Male

DRUGS (6)
  1. FUROSEMIDE. [Concomitant]
     Active Substance: FUROSEMIDE
  2. ECOTRIN [Concomitant]
     Active Substance: ASPIRIN
  3. AMBRISENTAN [Suspect]
     Active Substance: AMBRISENTAN
     Indication: PULMONARY ARTERIAL HYPERTENSION
     Dosage: 10 MG, QD
     Route: 065
     Dates: start: 20140414
  4. ALLOPURINOL. [Concomitant]
     Active Substance: ALLOPURINOL
  5. TRAMADOL. [Concomitant]
     Active Substance: TRAMADOL
  6. ADCIRCA [Concomitant]
     Active Substance: TADALAFIL

REACTIONS (3)
  - Viral infection [Unknown]
  - Oedema [Unknown]
  - Anaemia [Recovering/Resolving]

NARRATIVE: CASE EVENT DATE: 201411
